FAERS Safety Report 7595425-X (Version None)
Quarter: 2011Q3

REPORT INFORMATION
  Report Type: 
  Country: None (occurrence: None)
  Receive Date: 20110707
  Receipt Date: 20110701
  Transmission Date: 20111222
  Serious: Yes (Life-Threatening)
  Sender: FDA-Public Use
  Company Number: FR-EISAI INC-E3810-04787-SPO-FR

PATIENT
  Sex: Female

DRUGS (7)
  1. RISPERIDONE [Suspect]
     Route: 048
     Dates: start: 20110509, end: 20110525
  2. ASPIRIN [Concomitant]
  3. MILNACIPRAN [Concomitant]
  4. LEVOCETIRIZINE DIHYDROCHLORIDE [Suspect]
     Route: 048
     Dates: start: 20110303, end: 20110525
  5. RIVASTIGMINE [Suspect]
     Route: 048
     Dates: start: 20110304, end: 20110525
  6. RABEPRAZOLE SODIUM [Suspect]
     Indication: ILL-DEFINED DISORDER
     Dosage: UNKNOWN
     Route: 048
  7. ACETAMINOPHEN [Concomitant]

REACTIONS (2)
  - DYSPHAGIA [None]
  - SOMNOLENCE [None]
